FAERS Safety Report 7275067-6 (Version None)
Quarter: 2011Q1

REPORT INFORMATION
  Report Type: 
  Country: None (occurrence: None)
  Receive Date: 20110202
  Receipt Date: 20110202
  Transmission Date: 20110831
  Serious: No
  Sender: FDA-Public Use
  Company Number: None

PATIENT
  Sex: Female
  Weight: 85.2762 kg

DRUGS (3)
  1. ZOLOFT [Suspect]
  2. SERTRALINE HYDROCHLORIDE [Suspect]
     Dosage: 100MG 1 Q DAY ORAL
     Route: 048
     Dates: start: 20101018, end: 20110120
  3. SERTRALINE HYDROCHLORIDE [Suspect]
     Dosage: 50MG 1 Q DAY ORAL
     Route: 048
     Dates: start: 20100906, end: 20101015

REACTIONS (2)
  - DRUG INEFFECTIVE [None]
  - PRODUCT SUBSTITUTION ISSUE [None]
